FAERS Safety Report 9760805 (Version 3)
Quarter: 2014Q1

REPORT INFORMATION
  Report Type: Report from Study
  Country: US (occurrence: US)
  Receive Date: 20131216
  Receipt Date: 20140116
  Transmission Date: 20141002
  Serious: Yes (Hospitalization, Other)
  Sender: FDA-Public Use
  Company Number: US-PFIZER INC-2011178917

PATIENT
  Age: 50 Year
  Sex: Male
  Weight: 114 kg

DRUGS (8)
  1. LYRICA [Suspect]
     Indication: DIABETIC NEUROPATHY
     Dosage: 100 MG, DAILY
     Route: 048
     Dates: start: 201009
  2. LYRICA [Suspect]
     Indication: PAIN IN EXTREMITY
  3. LYRICA [Suspect]
     Indication: BACK PAIN
  4. INSULIN [Suspect]
     Indication: DIABETES MELLITUS
     Dosage: UNK
     Dates: start: 200808
  5. CYMBALTA [Suspect]
     Indication: DIABETIC NEUROPATHY
     Dosage: 60 MG, DAILY
     Route: 048
     Dates: end: 201305
  6. CYMBALTA [Suspect]
     Indication: BACK PAIN
  7. CYMBALTA [Suspect]
     Indication: PAIN IN EXTREMITY
  8. PRILOSEC [Suspect]
     Indication: GASTROOESOPHAGEAL REFLUX DISEASE
     Dosage: 20.6 MG, UNK

REACTIONS (19)
  - Haematemesis [Not Recovered/Not Resolved]
  - Loss of consciousness [Unknown]
  - Blood glucose increased [Unknown]
  - Dehydration [Unknown]
  - Nervous system disorder [Not Recovered/Not Resolved]
  - Blood glucose abnormal [Unknown]
  - Eructation [Unknown]
  - Dizziness [Unknown]
  - Vomiting [Recovering/Resolving]
  - Fall [Unknown]
  - Arthralgia [Not Recovered/Not Resolved]
  - Pain in extremity [Not Recovered/Not Resolved]
  - Insomnia [Not Recovered/Not Resolved]
  - Malaise [Not Recovered/Not Resolved]
  - Pyrexia [Unknown]
  - Feeling abnormal [Unknown]
  - Constipation [Recovering/Resolving]
  - Nausea [Unknown]
  - Drug ineffective [Not Recovered/Not Resolved]
